FAERS Safety Report 8852259 (Version 1)
Quarter: 2012Q4

REPORT INFORMATION
  Report Type: 
  Country: US (occurrence: US)
  Receive Date: 20121022
  Receipt Date: 20121022
  Transmission Date: 20130627
  Serious: No
  Sender: FDA-Public Use
  Company Number: US-MYLANLABS-2012S1010375

PATIENT
  Age: 55 Year
  Sex: Female

DRUGS (16)
  1. CARVEDILOL [Suspect]
     Indication: CARDIOMYOPATHY
     Route: 048
     Dates: start: 2011
  2. CARVEDILOL [Suspect]
     Indication: CARDIOMYOPATHY
     Route: 048
     Dates: start: 2011
  3. ENALAPRIL [Concomitant]
     Route: 048
  4. METFORMIN [Concomitant]
     Indication: DIABETES MELLITUS
     Route: 048
  5. GLIPIZIDE [Concomitant]
     Indication: DIABETES MELLITUS
     Route: 048
  6. DIGOXIN [Concomitant]
     Indication: CARDIAC FAILURE CONGESTIVE
     Route: 048
  7. FUROSEMIDE [Concomitant]
     Indication: CARDIAC FAILURE CONGESTIVE
     Route: 048
  8. ANASTROZOLE [Concomitant]
     Indication: NEOPLASM MALIGNANT
     Route: 048
  9. DICYCLOMINE [Concomitant]
     Indication: ABDOMINAL OPERATION
     Route: 048
  10. EFFEXOR SR [Concomitant]
     Route: 048
  11. OXYBUTYNIN [Concomitant]
     Route: 048
  12. ALPRAZOLAM [Concomitant]
     Route: 048
  13. REMERON [Concomitant]
     Route: 048
  14. CALCIUM + VIT.C [Concomitant]
     Indication: MINERAL SUPPLEMENTATION
     Route: 048
  15. SINGULAIR [Concomitant]
     Indication: MULTIPLE ALLERGIES
     Route: 048
  16. XYZAL [Concomitant]
     Indication: MULTIPLE ALLERGIES
     Route: 048

REACTIONS (1)
  - Glycosylated haemoglobin increased [Not Recovered/Not Resolved]
